FAERS Safety Report 13170308 (Version 1)
Quarter: 2017Q1

REPORT INFORMATION
  Report Type: Spontaneous
  Country: BR (occurrence: BR)
  Receive Date: 20170201
  Receipt Date: 20170201
  Transmission Date: 20170428
  Serious: Yes (Hospitalization)
  Sender: FDA-Public Use
  Company Number: BR-ROCHE-1884299

PATIENT
  Age: 79 Year
  Sex: Male
  Weight: 79 kg

DRUGS (7)
  1. OXALIBBS [Suspect]
     Active Substance: OXALIPLATIN
     Indication: PALLIATIVE CARE
     Route: 042
     Dates: start: 20170123, end: 20170123
  2. DEXAMETHASONE. [Concomitant]
     Active Substance: DEXAMETHASONE
     Indication: PALLIATIVE CARE
     Route: 042
     Dates: start: 20170123, end: 20170123
  3. OXALIBBS [Suspect]
     Active Substance: OXALIPLATIN
     Route: 042
     Dates: start: 20170123, end: 20170123
  4. SYNTHROID [Concomitant]
     Active Substance: LEVOTHYROXINE SODIUM
     Indication: HYPOTHYROIDISM
     Route: 048
     Dates: start: 20170123, end: 20170123
  5. XELODA [Suspect]
     Active Substance: CAPECITABINE
     Indication: PALLIATIVE CARE
     Route: 048
     Dates: start: 20170123, end: 20170123
  6. LOSARTAN. [Concomitant]
     Active Substance: LOSARTAN
     Indication: HYPERTENSION
     Route: 048
     Dates: start: 20170123, end: 20170123
  7. ONICIT [Concomitant]
     Active Substance: PALONOSETRON HYDROCHLORIDE
     Indication: PALLIATIVE CARE
     Route: 042
     Dates: start: 20170123, end: 20170123

REACTIONS (3)
  - Respiratory failure [Unknown]
  - Tremor [Unknown]
  - Feeling cold [Unknown]

NARRATIVE: CASE EVENT DATE: 20170123
